FAERS Safety Report 21983881 (Version 2)
Quarter: 2023Q1

REPORT INFORMATION
  Report Type: Spontaneous
  Country: US (occurrence: US)
  Receive Date: 20230213
  Receipt Date: 20230313
  Transmission Date: 20230417
  Serious: No
  Sender: FDA-Public Use
  Company Number: US-BIOVITRUM-2023US02198

PATIENT
  Sex: Female
  Weight: 10 kg

DRUGS (13)
  1. SYNAGIS [Suspect]
     Active Substance: PALIVIZUMAB
     Indication: Respiratory disorder neonatal
     Dosage: SYNAGIS 100 MG SDV/INJ PF 1ML  1S
     Route: 030
     Dates: start: 202110
  2. SYNAGIS [Suspect]
     Active Substance: PALIVIZUMAB
     Indication: Congenital tracheomalacia
  3. SYNAGIS [Suspect]
     Active Substance: PALIVIZUMAB
     Indication: Tracheostomy
  4. SYNAGIS [Suspect]
     Active Substance: PALIVIZUMAB
     Indication: Lung disorder
  5. SYNAGIS [Suspect]
     Active Substance: PALIVIZUMAB
     Indication: Premature baby
  6. SYNAGIS [Suspect]
     Active Substance: PALIVIZUMAB
     Indication: Illness
  7. PULMOZYME [Concomitant]
     Active Substance: DORNASE ALFA
     Indication: Product used for unknown indication
     Route: 065
  8. XOPENEX [Concomitant]
     Active Substance: LEVALBUTEROL HYDROCHLORIDE
     Indication: Product used for unknown indication
     Dosage: 0.63MG/3ML VIAL-NEB
     Route: 065
  9. PREDNISONE [Concomitant]
     Active Substance: PREDNISONE
     Indication: Product used for unknown indication
     Dosage: 5 MG/5 ML SOLUTION
     Route: 065
  10. PHENOBARBITAL [Concomitant]
     Active Substance: PHENOBARBITAL
     Indication: Product used for unknown indication
     Dosage: 20 MG/5 ML ELIXIR
     Route: 065
  11. OMEPRAZOLE [Concomitant]
     Active Substance: OMEPRAZOLE
     Indication: Product used for unknown indication
     Dosage: 20 MG TABLET DR
     Route: 065
  12. SIMETHICONE (DIMETHICONE) [Concomitant]
     Active Substance: DIMETHICONE
     Indication: Product used for unknown indication
     Dosage: 40MG/0.6ML DROPS SUSP
     Route: 065
  13. IRONUP [Concomitant]
     Indication: Product used for unknown indication
     Dosage: 15MG/0.5ML DROPS
     Route: 065

REACTIONS (1)
  - Infection [Unknown]
